FAERS Safety Report 7771901-1 (Version None)
Quarter: 2011Q3

REPORT INFORMATION
  Report Type: 
  Country: None (occurrence: None)
  Receive Date: 20110922
  Receipt Date: 20110204
  Transmission Date: 20111222
  Serious: No
  Sender: FDA-Public Use
  Company Number: US-ASTRAZENECA-2011SE06546

PATIENT
  Age: 73 Year
  Sex: Female
  Weight: 74.8 kg

DRUGS (11)
  1. SEROQUEL [Suspect]
     Indication: DEPRESSION
     Route: 048
     Dates: start: 20030101
  2. NARDIL [Concomitant]
     Indication: DEPRESSION
  3. PREMPRO [Concomitant]
     Indication: HORMONE REPLACEMENT THERAPY
  4. AGGRENOX [Concomitant]
     Indication: ANTICOAGULANT THERAPY
  5. POLYETHYLN GLYCOL [Concomitant]
     Indication: CONSTIPATION
  6. HYDROCHLOROT [Concomitant]
     Indication: HYPERTENSION
  7. SEROQUEL [Suspect]
     Indication: SLEEP DISORDER
     Route: 048
     Dates: start: 20030101
  8. XANAX [Concomitant]
     Indication: ANXIETY
  9. SYNTHROID [Concomitant]
     Indication: HYPOTHYROIDISM
  10. LIPITOR [Concomitant]
     Indication: HYPERCHOLESTEROLAEMIA
  11. NEXIUM [Concomitant]
     Indication: GASTROOESOPHAGEAL REFLUX DISEASE

REACTIONS (5)
  - DRUG DOSE OMISSION [None]
  - IMPAIRED WORK ABILITY [None]
  - HEADACHE [None]
  - FEELING OF DESPAIR [None]
  - DEPRESSED MOOD [None]
